FAERS Safety Report 25263380 (Version 1)
Quarter: 2025Q2

REPORT INFORMATION
  Report Type: Spontaneous
  Country: US (occurrence: None)
  Receive Date: 20250502
  Receipt Date: 20250502
  Transmission Date: 20250717
  Serious: No
  Sender: INCYTE
  Company Number: US-INCYTE CORPORATION-2025IN004344

PATIENT
  Age: 70 Year

DRUGS (2)
  1. JAKAFI [Suspect]
     Active Substance: RUXOLITINIB
     Indication: Thrombocytosis
     Dosage: 15 MILLIGRAM, BID
  2. JAKAFI [Suspect]
     Active Substance: RUXOLITINIB
     Indication: Essential thrombocythaemia

REACTIONS (3)
  - Muscle spasms [Unknown]
  - Weight increased [Unknown]
  - Off label use [Unknown]
